FAERS Safety Report 8647353 (Version 3)
Quarter: 2012Q4

REPORT INFORMATION
  Report Type: 
  Country: US (occurrence: US)
  Receive Date: 20120703
  Receipt Date: 20121120
  Transmission Date: 20130627
  Serious: Yes (Hospitalization, Other)
  Sender: FDA-Public Use
  Company Number: US-SANOFI-AVENTIS-2012SA046470

PATIENT
  Age: 52 None
  Sex: Female
  Weight: 157 kg

DRUGS (18)
  1. MULTAQ [Suspect]
     Indication: ATRIAL FIBRILLATION
     Route: 048
     Dates: start: 20110623, end: 20120210
  2. MULTAQ [Suspect]
     Indication: ATRIAL FLUTTER
     Route: 048
     Dates: start: 20110623, end: 20120210
  3. DABIGATRAN ETEXILATE [Suspect]
     Indication: ANTICOAGULANT THERAPY
     Route: 065
     Dates: start: 20110623, end: 201107
  4. ASPIRIN [Concomitant]
     Indication: ANTICOAGULANT THERAPY
     Dates: start: 201106
  5. LASIX [Concomitant]
  6. LEVOXYL [Concomitant]
     Indication: HYPOTHYROIDISM
  7. LIPITOR /UNK/ [Concomitant]
     Indication: HYPERLIPIDEMIA
     Dates: start: 201201
  8. ESTRATEST HS [Concomitant]
     Indication: MENOPAUSE
  9. PROMETRIUM [Concomitant]
     Indication: MENOPAUSE
  10. NAPROXEN [Concomitant]
     Indication: PAIN
  11. MOTRIN [Concomitant]
     Indication: PAIN
  12. PRAVASTATIN [Concomitant]
     Indication: HYPERLIPIDEMIA
     Dates: end: 201201
  13. ATIVAN [Concomitant]
     Indication: ANXIETY
     Dates: start: 2004
  14. ATENOLOL [Concomitant]
     Indication: HEART DISORDER
     Dates: start: 201103, end: 201106
  15. VIAGRA [Concomitant]
     Indication: PULMONARY HYPERTENSION
     Dates: start: 201106, end: 201107
  16. RANITIDINE [Concomitant]
     Indication: GASTRIC DISORDER
     Dates: start: 201106, end: 201107
  17. ZOLOFT [Concomitant]
     Indication: ANXIETY
     Dates: start: 2004, end: 2012
  18. SUMATRIPTAN [Concomitant]
     Indication: MIGRAINE
     Dates: start: 2005, end: 201103

REACTIONS (7)
  - Pleural effusion [Recovering/Resolving]
  - Dyspnoea [Not Recovered/Not Resolved]
  - Chest discomfort [Recovering/Resolving]
  - Cough [Recovering/Resolving]
  - Lung disorder [Not Recovered/Not Resolved]
  - Pulmonary function test abnormal [Not Recovered/Not Resolved]
  - Dyspnoea [Not Recovered/Not Resolved]
